FAERS Safety Report 13846571 (Version 14)
Quarter: 2018Q4

REPORT INFORMATION
  Report Type: Report from Study
  Country: IL (occurrence: IL)
  Receive Date: 20170808
  Receipt Date: 20181106
  Transmission Date: 20190204
  Serious: Yes (Hospitalization, Other)
  Sender: FDA-Public Use
  Company Number: PHHY2017IL087681

PATIENT
  Age: 81 Year
  Sex: Female

DRUGS (3)
  1. ZINNAT [Concomitant]
     Active Substance: CEFUROXIME AXETIL
     Indication: PRODUCT USED FOR UNKNOWN INDICATION
     Dosage: UNK
     Route: 065
  2. AFINITOR [Suspect]
     Active Substance: EVEROLIMUS
     Dosage: 10 MG, QD
     Route: 048
     Dates: start: 20170804
  3. AFINITOR [Suspect]
     Active Substance: EVEROLIMUS
     Indication: BREAST CANCER
     Dosage: 10 MG, QD
     Route: 048
     Dates: start: 20170516, end: 20170801

REACTIONS (24)
  - Hypotension [Recovered/Resolved]
  - Haemoglobin decreased [Recovering/Resolving]
  - Onychoclasis [Recovered/Resolved]
  - Pruritus [Not Recovered/Not Resolved]
  - Blood glucose increased [Recovering/Resolving]
  - Alopecia [Recovering/Resolving]
  - Pain [Not Recovered/Not Resolved]
  - Oral mucosal erythema [Not Recovered/Not Resolved]
  - Asthenia [Not Recovered/Not Resolved]
  - Carbohydrate antigen 15-3 increased [Not Recovered/Not Resolved]
  - Onychoclasis [Not Recovered/Not Resolved]
  - Decreased appetite [Not Recovered/Not Resolved]
  - Oral pain [Not Recovered/Not Resolved]
  - Fall [Unknown]
  - Movement disorder [Unknown]
  - Pruritus [Recovered/Resolved]
  - Pyrexia [Recovered/Resolved]
  - Restlessness [Recovered/Resolved]
  - Vomiting [Unknown]
  - Weight decreased [Unknown]
  - Diarrhoea [Recovered/Resolved]
  - Renal impairment [Unknown]
  - Dizziness [Not Recovered/Not Resolved]
  - Dysphagia [Not Recovered/Not Resolved]

NARRATIVE: CASE EVENT DATE: 20180124
